FAERS Safety Report 9261586 (Version 1)
Quarter: 2013Q2

REPORT INFORMATION
  Report Type: Spontaneous
  Country: IT (occurrence: IT)
  Receive Date: 20130429
  Receipt Date: 20130429
  Transmission Date: 20140414
  Serious: Yes (Hospitalization, Other)
  Sender: FDA-Public Use
  Company Number: IT-PFIZER INC-2013129180

PATIENT
  Age: 72 Year
  Sex: Female

DRUGS (5)
  1. SUTENT [Suspect]
     Indication: RENAL CELL CARCINOMA
     Dosage: 50 MG, 1X/DAY (4/6WEEKS)
     Route: 048
     Dates: start: 200707
  2. SUTENT [Suspect]
     Dosage: 37.5 MG, 1X/DAY ((4/6WEKS)
     Route: 048
  3. SUTENT [Suspect]
     Dosage: 25 MG, 1X/DAY (4/6 WEEKS)
     Route: 048
     Dates: end: 201012
  4. SUTENT [Suspect]
     Dosage: 37.5 MG, 1X/DAY, (4/6 WEEKS)
     Route: 048
  5. SUTENT [Suspect]
     Dosage: UNK
     Dates: end: 201108

REACTIONS (10)
  - Skin toxicity [Unknown]
  - Fall [Unknown]
  - Upper limb fracture [Unknown]
  - Gastrointestinal toxicity [Unknown]
  - Mucosal inflammation [Unknown]
  - Hypertension [Recovered/Resolved]
  - Oedema [Unknown]
  - Palmar-plantar erythrodysaesthesia syndrome [Unknown]
  - Disease progression [Unknown]
  - Renal cell carcinoma [Unknown]
